FAERS Safety Report 9171508 (Version 2)
Quarter: 2013Q2

REPORT INFORMATION
  Report Type: Spontaneous
  Country: US (occurrence: US)
  Receive Date: 20130319
  Receipt Date: 20130410
  Transmission Date: 20140414
  Serious: Yes (Life-Threatening, Hospitalization, Disabling, Other)
  Sender: FDA-Public Use
  Company Number: US-GLAXOSMITHKLINE-A1016383A

PATIENT
  Age: 57 Year
  Sex: Male
  Weight: 97.2 kg

DRUGS (11)
  1. BENLYSTA [Suspect]
     Indication: SYSTEMIC LUPUS ERYTHEMATOSUS
     Dosage: 10MGK MONTHLY
     Route: 042
     Dates: start: 20120219
  2. SOLUMEDROL [Suspect]
     Indication: PRODUCT USED FOR UNKNOWN INDICATION
     Route: 042
     Dates: start: 20130207
  3. METHOTREXATE [Concomitant]
  4. VITAMIN D [Concomitant]
  5. ZOCOR [Concomitant]
  6. HYDROCODONE [Concomitant]
  7. XANAX [Concomitant]
  8. SERTRALINE [Concomitant]
  9. RAMIPRIL [Concomitant]
  10. PREDNISONE [Concomitant]
  11. METOPROLOL [Concomitant]

REACTIONS (10)
  - Atrial fibrillation [Recovered/Resolved]
  - Pulmonary embolism [Recovered/Resolved]
  - Heart rate increased [Recovered/Resolved]
  - Chest pain [Recovered/Resolved]
  - Palpitations [Recovering/Resolving]
  - Dizziness [Recovering/Resolving]
  - Syncope [Recovering/Resolving]
  - Dyspnoea [Recovering/Resolving]
  - Tachycardia [Recovering/Resolving]
  - Deep vein thrombosis [Recovering/Resolving]
